FAERS Safety Report 12177090 (Version 1)
Quarter: 2016Q1

REPORT INFORMATION
  Report Type: Spontaneous
  Country: DE (occurrence: DE)
  Receive Date: 20160315
  Receipt Date: 20160315
  Transmission Date: 20160526
  Serious: Yes (Other)
  Sender: FDA-Public Use
  Company Number: DE-ROCHE-1721703

PATIENT
  Sex: Male

DRUGS (7)
  1. MABTHERA [Suspect]
     Active Substance: RITUXIMAB
     Indication: CHRONIC LYMPHOCYTIC LEUKAEMIA RECURRENT
     Dosage: 1ST LINE, TOGETHER WITH BENDAMUSTIN
     Route: 042
  2. CYCLOPHOSPHAMIDE. [Concomitant]
     Active Substance: CYCLOPHOSPHAMIDE
     Indication: CHRONIC LYMPHOCYTIC LEUKAEMIA RECURRENT
     Route: 065
     Dates: start: 201509
  3. BENDAMUSTINE [Concomitant]
     Active Substance: BENDAMUSTINE
     Indication: CHRONIC LYMPHOCYTIC LEUKAEMIA RECURRENT
  4. MABTHERA [Suspect]
     Active Substance: RITUXIMAB
     Dosage: MAINTENANCE THERAPY
     Route: 042
  5. LARIAM [Suspect]
     Active Substance: MEFLOQUINE HYDROCHLORIDE
     Indication: PRODUCT USED FOR UNKNOWN INDICATION
     Route: 065
  6. FLUDARABINE [Concomitant]
     Active Substance: FLUDARABINE PHOSPHATE
     Indication: CHRONIC LYMPHOCYTIC LEUKAEMIA RECURRENT
     Route: 065
     Dates: start: 201509
  7. MABTHERA [Suspect]
     Active Substance: RITUXIMAB
     Dosage: 2ND LINE, WITH FLUDARABIN AND CYCLOPHOSPHAMIDE
     Route: 042
     Dates: start: 201509

REACTIONS (6)
  - Oedema [Unknown]
  - Memory impairment [Unknown]
  - Visual impairment [Unknown]
  - Progressive multifocal leukoencephalopathy [Unknown]
  - Speech disorder [Unknown]
  - Cerebral disorder [Unknown]
